FAERS Safety Report 5457441-3 (Version None)
Quarter: 2007Q3

REPORT INFORMATION
  Report Type: 
  Country: None (occurrence: None)
  Receive Date: 20070918
  Receipt Date: 20070911
  Transmission Date: 20080115
  Serious: Yes (Hospitalization)
  Sender: FDA-Public Use
  Company Number: BE-PFIZER INC-2007071842

PATIENT
  Sex: Female

DRUGS (4)
  1. SU-011,248 [Suspect]
     Indication: BREAST CANCER
     Route: 048
     Dates: start: 20070727, end: 20070829
  2. VALACYCLOVIR HCL [Concomitant]
     Dosage: TEXT:500 MG
     Route: 048
     Dates: start: 20070822, end: 20070829
  3. TRAMADOL HCL [Concomitant]
     Route: 048
     Dates: start: 20070801, end: 20070829
  4. BUPRENORPHINE HCL [Concomitant]
     Dates: start: 20070801, end: 20070829

REACTIONS (1)
  - BACTERIAL SEPSIS [None]
